FAERS Safety Report 5269162-0 (Version None)
Quarter: 2007Q1

REPORT INFORMATION
  Report Type: 
  Country: None (occurrence: None)
  Receive Date: 20070319
  Receipt Date: 20070313
  Transmission Date: 20070707
  Serious: Yes (Other)
  Sender: FDA-Public Use
  Company Number: US-ROXANE LABORATORIES, INC-2007-BP-03555RO

PATIENT
  Age: 49 Year
  Sex: Male

DRUGS (9)
  1. METHOTREXATE [Suspect]
     Indication: ALLOGENIC BONE MARROW TRANSPLANTATION THERAPY
  2. METHOTREXATE [Suspect]
     Indication: PROPHYLAXIS AGAINST GRAFT VERSUS HOST DISEASE
  3. CYCLOPHOSPHAMIDE [Suspect]
     Indication: ALLOGENIC BONE MARROW TRANSPLANTATION THERAPY
  4. DEXAMETHASONE [Suspect]
     Indication: ALLOGENIC BONE MARROW TRANSPLANTATION THERAPY
  5. VINCRISTINE [Suspect]
     Indication: ALLOGENIC BONE MARROW TRANSPLANTATION THERAPY
  6. DOXORUBICIN HCL [Suspect]
     Indication: ALLOGENIC BONE MARROW TRANSPLANTATION THERAPY
  7. CYTARABINE [Suspect]
     Indication: ALLOGENIC BONE MARROW TRANSPLANTATION THERAPY
  8. TRIMETHOPRIM + SULFAMETHOXAZOLE [Suspect]
     Indication: PROPHYLAXIS
  9. ETOPOSIDE [Suspect]
     Indication: ALLOGENIC BONE MARROW TRANSPLANTATION THERAPY

REACTIONS (4)
  - MUCOSAL INFLAMMATION [None]
  - RASH MACULO-PAPULAR [None]
  - RECALL PHENOMENON [None]
  - WHITE BLOOD CELL COUNT DECREASED [None]
